FAERS Safety Report 20035371 (Version 2)
Quarter: 2022Q2

REPORT INFORMATION
  Report Type: Spontaneous
  Country: DE (occurrence: DE)
  Receive Date: 20211104
  Receipt Date: 20220621
  Transmission Date: 20220721
  Serious: Yes (Hospitalization)
  Sender: FDA-Public Use
  Company Number: DE-JNJFOC-20211040615

PATIENT
  Age: 7 Decade
  Sex: Male
  Weight: 109 kg

DRUGS (6)
  1. DEXAMETHASONE [Suspect]
     Active Substance: DEXAMETHASONE
     Indication: Plasma cell myeloma
     Route: 065
     Dates: start: 20210705, end: 20211109
  2. DEXAMETHASONE [Suspect]
     Active Substance: DEXAMETHASONE
     Dosage: DATE OF THE LAST DOSAGE BEFORE EVENT ONSET WAS 06/SEP/2021 LINE 1
     Route: 065
     Dates: start: 20210705
  3. DARATUMUMAB [Suspect]
     Active Substance: DARATUMUMAB
     Indication: Plasma cell myeloma
     Dosage: DATE OF THE LAST DOSAGE BEFORE EVENT ONSET WAS 06/SEP/2021 LINE 1
     Route: 058
     Dates: start: 20210705, end: 20210906
  4. THALIDOMIDE [Suspect]
     Active Substance: THALIDOMIDE
     Indication: Plasma cell myeloma
     Dosage: DATE OF THE LAST DOSAGE BEFORE EVENT ONSET WAS 06-SEP-2021 LINE 1
     Route: 065
     Dates: start: 20210705, end: 20211121
  5. VELCADE [Suspect]
     Active Substance: BORTEZOMIB
     Indication: Plasma cell myeloma
     Dosage: DATE OF THE LAST DOSAGE BEFORE EVENT ONSET WAS 26/AUG/2021 LINE 1
     Route: 065
     Dates: start: 20210705, end: 20211104
  6. GABAPENTIN BETA [Concomitant]
     Indication: Product used for unknown indication
     Dosage: 600 MG/ 800 MG
     Route: 048
     Dates: start: 20211004

REACTIONS (1)
  - Rash [Recovered/Resolved]

NARRATIVE: CASE EVENT DATE: 20210908
